FAERS Safety Report 5968594-2 (Version None)
Quarter: 2008Q4

REPORT INFORMATION
  Report Type: 
  Country: None (occurrence: None)
  Receive Date: 20081126
  Receipt Date: 20081114
  Transmission Date: 20090506
  Serious: Yes (Other)
  Sender: FDA-Public Use
  Company Number: GB-MERCK-0811GBR00061B1

PATIENT
  Sex: Female

DRUGS (4)
  1. ISENTRESS [Suspect]
     Indication: HIV INFECTION
     Route: 064
     Dates: start: 20060608
  2. DARUNAVIR [Suspect]
     Route: 064
     Dates: start: 20060608
  3. ETRAVIRINE [Suspect]
     Route: 064
     Dates: start: 20070713
  4. RITONAVIR [Suspect]
     Route: 064
     Dates: start: 20070608

REACTIONS (1)
  - CHORIOAMNIONITIS [None]
